FAERS Safety Report 7898644-8 (Version None)
Quarter: 2011Q4

REPORT INFORMATION
  Report Type: 
  Country: None (occurrence: None)
  Receive Date: 20111107
  Receipt Date: 20111107
  Transmission Date: 20120403
  Serious: No
  Sender: FDA-Public Use
  Company Number: None

PATIENT
  Age: 64 Year
  Sex: Female
  Weight: 83.914 kg

DRUGS (1)
  1. RESTASIS [Suspect]
     Indication: DRY EYE
     Dosage: ONE DROP EACH EYE
     Dates: start: 20110929, end: 20110930

REACTIONS (3)
  - FACE OEDEMA [None]
  - SINUS CONGESTION [None]
  - PAIN [None]
